FAERS Safety Report 25674677 (Version 1)
Quarter: 2025Q3

REPORT INFORMATION
  Report Type: Spontaneous
  Country: EU (occurrence: EU)
  Receive Date: 20250813
  Receipt Date: 20250813
  Transmission Date: 20251021
  Serious: Yes (Hospitalization)
  Sender: RANBAXY
  Company Number: EU-SUN PHARMACEUTICAL INDUSTRIES LTD-2025RR-521775

PATIENT
  Age: 66 Year
  Sex: Male
  Weight: 62.1 kg

DRUGS (2)
  1. INDAPAMIDE [Suspect]
     Active Substance: INDAPAMIDE
     Indication: Hypertension
     Dosage: 1.5 MILLIGRAM, DAILY
     Route: 048
     Dates: start: 20231207, end: 20250323
  2. FLUOXETINE [Suspect]
     Active Substance: FLUOXETINE HYDROCHLORIDE
     Indication: Depression
     Dosage: 20 MILLIGRAM, DAILY
     Route: 048
     Dates: start: 2024, end: 20250323

REACTIONS (2)
  - Hyponatraemia [Recovered/Resolved]
  - Hypochloraemia [Recovered/Resolved]

NARRATIVE: CASE EVENT DATE: 20250323
